FAERS Safety Report 5716480-5 (Version None)
Quarter: 2008Q2

REPORT INFORMATION
  Report Type: 
  Country: None (occurrence: None)
  Receive Date: 20080423
  Receipt Date: 20080321
  Transmission Date: 20081010
  Serious: Yes (Hospitalization)
  Sender: FDA-Public Use
  Company Number: WAES 0803USA03647

PATIENT
  Age: 49 Year
  Sex: Male

DRUGS (7)
  1. JANUMET [Suspect]
     Indication: DIABETES MELLITUS
     Dosage: 500MG/50 MG/DAILY/PO; 500MG/50 MG/BID/PO
     Route: 048
     Dates: start: 20080101, end: 20080101
  2. JANUMET [Suspect]
     Indication: DIABETES MELLITUS
     Dosage: 500MG/50 MG/DAILY/PO; 500MG/50 MG/BID/PO
     Route: 048
     Dates: start: 20080101, end: 20080320
  3. ACTOPLUS MET [Concomitant]
  4. CLINORIL [Concomitant]
  5. LEVOXYL [Concomitant]
  6. GEMFIBROZIL [Concomitant]
  7. PRAVASTATIN SODIUM [Concomitant]

REACTIONS (10)
  - ERUCTATION [None]
  - EYE ROLLING [None]
  - HEADACHE [None]
  - HYPERCHLORHYDRIA [None]
  - INAPPROPRIATE SCHEDULE OF DRUG ADMINISTRATION [None]
  - MALAISE [None]
  - NAUSEA [None]
  - RETCHING [None]
  - UNRESPONSIVE TO STIMULI [None]
  - VOMITING [None]
